FAERS Safety Report 7110300-2 (Version None)
Quarter: 2010Q4

REPORT INFORMATION
  Report Type: 
  Country: None (occurrence: None)
  Receive Date: 20101117
  Receipt Date: 20101117
  Transmission Date: 20110411
  Serious: Yes (Hospitalization)
  Sender: FDA-Public Use
  Company Number: None

PATIENT
  Sex: Female
  Weight: 126.1 kg

DRUGS (1)
  1. CYCLOBENZAPRINE HCL [Suspect]
     Indication: MUSCLE SPASMS
     Dosage: QTY 20 1 EVERY 8 HRS ORAL
     Route: 048
     Dates: start: 20101006, end: 20101009

REACTIONS (3)
  - ASTHMA [None]
  - FLUID RETENTION [None]
  - MICTURITION DISORDER [None]
